FAERS Safety Report 10964223 (Version 2)
Quarter: 2015Q2

REPORT INFORMATION
  Report Type: Spontaneous
  Country: US (occurrence: US)
  Receive Date: 20150329
  Receipt Date: 20150524
  Transmission Date: 20150821
  Serious: No
  Sender: FDA-Public Use
  Company Number: US-JNJFOC-20131012875

PATIENT
  Sex: Female
  Weight: 72.58 kg

DRUGS (1)
  1. DURAGESIC [Suspect]
     Active Substance: FENTANYL
     Indication: BACK PAIN
     Dosage: 150MCG/PATCH/100MCG+50MCG/1 IN??48 HOURS/TD
     Route: 062

REACTIONS (3)
  - Hyperhidrosis [Not Recovered/Not Resolved]
  - Breakthrough pain [Not Recovered/Not Resolved]
  - Product quality issue [Not Recovered/Not Resolved]
